FAERS Safety Report 7099826-8 (Version None)
Quarter: 2010Q4

REPORT INFORMATION
  Report Type: 
  Country: None (occurrence: None)
  Receive Date: 20101112
  Receipt Date: 20101105
  Transmission Date: 20110411
  Serious: Yes (Other)
  Sender: FDA-Public Use
  Company Number: US-US-EMD SERONO, INC.-7026520

PATIENT
  Sex: Female
  Weight: 60 kg

DRUGS (2)
  1. SEROPHENE [Suspect]
     Indication: ANOVULATORY CYCLE
     Dates: start: 20100101, end: 20100901
  2. VITAMINS DURING PREGNANCY [Concomitant]
     Dates: start: 20100101

REACTIONS (4)
  - ABORTION SPONTANEOUS [None]
  - AMENORRHOEA [None]
  - DRUG EXPOSURE BEFORE PREGNANCY [None]
  - PREGNANCY [None]
